FAERS Safety Report 7357965-8 (Version None)
Quarter: 2011Q1

REPORT INFORMATION
  Report Type: 
  Country: None (occurrence: None)
  Receive Date: 20110317
  Receipt Date: 20110315
  Transmission Date: 20110831
  Serious: Yes (Other)
  Sender: FDA-Public Use
  Company Number: US-PFIZER INC-2011056953

PATIENT
  Sex: Female
  Weight: 68.027 kg

DRUGS (1)
  1. LYRICA [Suspect]
     Indication: PAIN
     Dosage: UNK
     Route: 048
     Dates: start: 20101001, end: 20101101

REACTIONS (5)
  - POLYMYALGIA RHEUMATICA [None]
  - LIP SWELLING [None]
  - MUSCLE DISORDER [None]
  - PAIN [None]
  - HYPERSENSITIVITY [None]
